FAERS Safety Report 7353339-4 (Version None)
Quarter: 2011Q1

REPORT INFORMATION
  Report Type: 
  Country: None (occurrence: None)
  Receive Date: 20110315
  Receipt Date: 20110307
  Transmission Date: 20110831
  Serious: Yes (Disabling, Other)
  Sender: FDA-Public Use
  Company Number: US-MERCK-1008USA01077

PATIENT
  Age: 69 Year
  Sex: Female
  Weight: 61 kg

DRUGS (8)
  1. FOSAMAX [Suspect]
     Indication: OSTEOPOROSIS
     Route: 048
     Dates: start: 20010227, end: 20030905
  2. PRINIVIL [Concomitant]
     Route: 048
  3. PRINIVIL [Concomitant]
     Indication: HYPERTENSION
     Route: 048
  4. SIMVASTATIN [Concomitant]
     Indication: BLOOD CHOLESTEROL
     Route: 065
     Dates: start: 19900101, end: 20090101
  5. BONIVA [Suspect]
     Indication: OSTEOPOROSIS
     Route: 065
     Dates: start: 20070602, end: 20080801
  6. SYNTHROID [Concomitant]
     Route: 065
  7. PRINIVIL [Concomitant]
     Route: 048
  8. ACTONEL [Suspect]
     Indication: OSTEOPOROSIS
     Route: 065
     Dates: start: 20030906, end: 20070601

REACTIONS (47)
  - BLOOD PRESSURE INCREASED [None]
  - INFLUENZA [None]
  - PYREXIA [None]
  - OSTEOARTHRITIS [None]
  - GASTRITIS [None]
  - VITAMIN D DEFICIENCY [None]
  - ORAL INFECTION [None]
  - OESOPHAGITIS [None]
  - LYME DISEASE [None]
  - DIVERTICULUM [None]
  - ACROCHORDON [None]
  - THYROID DISORDER [None]
  - EUSTACHIAN TUBE DISORDER [None]
  - FEMUR FRACTURE [None]
  - CARDIOMEGALY [None]
  - LOW TURNOVER OSTEOPATHY [None]
  - KYPHOSIS [None]
  - ARTHRALGIA [None]
  - SKIN LESION [None]
  - ASTHENIA [None]
  - TRIGGER FINGER [None]
  - MOUTH ULCERATION [None]
  - FALL [None]
  - ADVERSE DRUG REACTION [None]
  - ANAEMIA [None]
  - ARTHRITIS [None]
  - HAEMORRHOIDS [None]
  - SPONDYLOLYSIS [None]
  - OSTEONECROSIS OF JAW [None]
  - HIATUS HERNIA [None]
  - HEADACHE [None]
  - OVERWEIGHT [None]
  - SPINAL OSTEOARTHRITIS [None]
  - NAUSEA [None]
  - MENISCUS LESION [None]
  - DRUG HYPERSENSITIVITY [None]
  - LUMBAR VERTEBRAL FRACTURE [None]
  - HYPOTHYROIDISM [None]
  - BRUXISM [None]
  - HEARING IMPAIRED [None]
  - OVARIAN CYST [None]
  - COLITIS [None]
  - FACIAL PAIN [None]
  - SCOLIOSIS [None]
  - OTITIS MEDIA [None]
  - TOOTHACHE [None]
  - MYALGIA [None]
